FAERS Safety Report 24987885 (Version 1)
Quarter: 2025Q1

REPORT INFORMATION
  Report Type: Spontaneous
  Country: US (occurrence: US)
  Receive Date: 20250219
  Receipt Date: 20250219
  Transmission Date: 20250408
  Serious: No
  Sender: INVENTIA HEALTHCARE LTD
  Company Number: None

PATIENT
  Sex: Female

DRUGS (3)
  1. CARVEDILOL [Suspect]
     Active Substance: CARVEDILOL
     Indication: Product used for unknown indication
     Route: 065
     Dates: start: 20241010
  2. HYDROCHLOROTHIAZIDE [Concomitant]
     Active Substance: HYDROCHLOROTHIAZIDE
     Indication: Product used for unknown indication
     Route: 065
  3. TELMISARTAN [Suspect]
     Active Substance: TELMISARTAN
     Indication: Hypertension
     Dosage: 1 IN THE MORNING AND 2 AT NIGHT
     Route: 065
     Dates: start: 20241010

REACTIONS (5)
  - Therapeutic response changed [Unknown]
  - Product formulation issue [Unknown]
  - Product substitution issue [Unknown]
  - Blood pressure increased [Recovered/Resolved]
  - Drug ineffective [Unknown]
